FAERS Safety Report 5495840-4 (Version None)
Quarter: 2007Q4

REPORT INFORMATION
  Report Type: 
  Country: None (occurrence: None)
  Receive Date: 20071025
  Receipt Date: 20071012
  Transmission Date: 20080405
  Serious: Yes (Hospitalization)
  Sender: FDA-Public Use
  Company Number: JP-AMGEN-US217373

PATIENT
  Sex: Female

DRUGS (6)
  1. ENBREL [Suspect]
     Indication: RHEUMATOID ARTHRITIS
     Route: 058
     Dates: start: 20060824, end: 20060912
  2. HUSTAZOL [Concomitant]
     Indication: INTERSTITIAL LUNG DISEASE
     Route: 048
     Dates: start: 20050323
  3. PREDONINE [Concomitant]
     Indication: RHEUMATOID ARTHRITIS
     Route: 048
     Dates: start: 20060420, end: 20061006
  4. FEXOFENADINE HYDROCHLORIDE [Concomitant]
     Route: 065
     Dates: start: 20060908
  5. FAMOTIDINE [Concomitant]
     Route: 065
     Dates: start: 20060908
  6. DIFLUPREDNATE [Concomitant]
     Route: 061

REACTIONS (5)
  - CONDITION AGGRAVATED [None]
  - INTERSTITIAL LUNG DISEASE [None]
  - MYOSITIS [None]
  - NERVE INJURY [None]
  - PNEUMONIA [None]
